FAERS Safety Report 16363358 (Version 1)
Quarter: 2019Q2

REPORT INFORMATION
  Report Type: Spontaneous
  Country: FR (occurrence: FR)
  Receive Date: 20190528
  Receipt Date: 20190528
  Transmission Date: 20190711
  Serious: Yes (Other)
  Sender: FDA-Public Use
  Company Number: FR-MYLANLABS-2019M1048748

PATIENT
  Age: 61 Year
  Sex: Male
  Weight: 93 kg

DRUGS (2)
  1. OPDIVO [Suspect]
     Active Substance: NIVOLUMAB
     Indication: OROPHARYNGEAL SQUAMOUS CELL CARCINOMA
     Dosage: 240 MILLIGRAM, BIWEEKLY
     Route: 041
     Dates: start: 20180828
  2. CISPLATIN. [Suspect]
     Active Substance: CISPLATIN
     Indication: OROPHARYNGEAL SQUAMOUS CELL CARCINOMA
     Dosage: NON PR?CIS?E
     Route: 041
     Dates: start: 20180828

REACTIONS (1)
  - Thyroiditis [Not Recovered/Not Resolved]

NARRATIVE: CASE EVENT DATE: 20180911
